FAERS Safety Report 12539034 (Version 1)
Quarter: 2016Q3

REPORT INFORMATION
  Report Type: Spontaneous
  Country: CA (occurrence: CA)
  Receive Date: 20160708
  Receipt Date: 20160708
  Transmission Date: 20161109
  Serious: Yes (Disabling)
  Sender: FDA-Public Use
  Company Number: CA-BAUSCH-BL-2016-016015

PATIENT
  Age: 20 Year
  Sex: Male

DRUGS (3)
  1. CIPRALEX [Concomitant]
     Active Substance: ESCITALOPRAM OXALATE
     Indication: PRODUCT USED FOR UNKNOWN INDICATION
  2. WELLBUTRIN XL [Suspect]
     Active Substance: BUPROPION HYDROCHLORIDE
     Indication: DEPRESSION
     Route: 048
  3. WELLBUTRIN XL [Suspect]
     Active Substance: BUPROPION HYDROCHLORIDE
     Indication: ANXIETY

REACTIONS (6)
  - Urticaria [Recovered/Resolved]
  - Swelling [Recovered/Resolved]
  - Serum sickness-like reaction [Recovered/Resolved]
  - Malaise [Recovered/Resolved]
  - Temporomandibular joint syndrome [Recovered/Resolved]
  - Peripheral swelling [Recovered/Resolved]
